FAERS Safety Report 16232745 (Version 2)
Quarter: 2019Q2

REPORT INFORMATION
  Report Type: Spontaneous
  Country: KR (occurrence: KR)
  Receive Date: 20190424
  Receipt Date: 20190610
  Transmission Date: 20190711
  Serious: Yes (Death, Hospitalization, Other)
  Sender: FDA-Public Use
  Company Number: KR-009507513-1904KOR009931

PATIENT
  Sex: Female

DRUGS (8)
  1. BCG LIVE [Suspect]
     Active Substance: BACILLUS CALMETTE-GUERIN SUBSTRAIN TICE LIVE ANTIGEN
     Indication: BLADDER TRANSITIONAL CELL CARCINOMA
     Dosage: #6
     Route: 043
     Dates: start: 201003, end: 201005
  2. BCG LIVE [Suspect]
     Active Substance: BACILLUS CALMETTE-GUERIN SUBSTRAIN TICE LIVE ANTIGEN
     Dosage: #6
     Route: 043
     Dates: start: 201005, end: 201207
  3. CISPLATIN. [Concomitant]
     Active Substance: CISPLATIN
     Dosage: 30% DRUG #5
     Dates: start: 20171030, end: 20180302
  4. PACLITAXEL. [Concomitant]
     Active Substance: PACLITAXEL
     Dosage: WEEKLY
     Dates: start: 20180412
  5. KEYTRUDA [Suspect]
     Active Substance: PEMBROLIZUMAB
     Indication: MALIGNANT NEOPLASM OF RENAL PELVIS
     Dosage: UNK
     Dates: start: 20180528, end: 20180604
  6. GEMCITABINE [Concomitant]
     Active Substance: GEMCITABINE\GEMCITABINE HYDROCHLORIDE
     Dosage: 30% DR
     Dates: start: 20171030, end: 20180302
  7. CARBOPLATIN. [Concomitant]
     Active Substance: CARBOPLATIN
     Dosage: AUC 3
  8. CISPLATIN (+) DOXORUBICIN (+) METHOTREXATE (+) VINBLASTINE SULFATE [Concomitant]
     Dosage: UNK
     Dates: start: 20170721

REACTIONS (6)
  - Acute kidney injury [Unknown]
  - Metabolic acidosis [Unknown]
  - Asthenia [Unknown]
  - Malignant neoplasm progression [Fatal]
  - Septic shock [Unknown]
  - Pneumonia [Unknown]

NARRATIVE: CASE EVENT DATE: 201806
